FAERS Safety Report 8371781-X (Version None)
Quarter: 2012Q2

REPORT INFORMATION
  Report Type: 
  Country: None (occurrence: None)
  Receive Date: 20120518
  Receipt Date: 20120424
  Transmission Date: 20120825
  Serious: Yes (Hospitalization)
  Sender: FDA-Public Use
  Company Number: US-BAXTER-2012BAX004367

PATIENT
  Sex: Male

DRUGS (1)
  1. SODIUM CHLORIDE INJ [Suspect]
     Route: 042

REACTIONS (1)
  - PNEUMONIA [None]
